FAERS Safety Report 4396082-6 (Version None)
Quarter: 2004Q3

REPORT INFORMATION
  Report Type: 
  Country: None (occurrence: None)
  Receive Date: 20040707
  Receipt Date: 20040624
  Transmission Date: 20050211
  Serious: Yes (Hospitalization)
  Sender: FDA-Public Use
  Company Number: FR-2004-028049

PATIENT
  Age: 75 Year
  Sex: Male

DRUGS (6)
  1. SOTALOL HCL [Suspect]
     Indication: MYOCARDIAL ISCHAEMIA
     Dosage: 240 MG, 1X/DAY, ORAL
     Route: 048
     Dates: end: 20040226
  2. PLAVIX [Suspect]
     Indication: MYOCARDIAL ISCHAEMIA
     Dosage: 75 MG, 1X/DAY,ORAL
     Route: 048
  3. VASTAREL ^BIOPHARMA^ (TRIMETAZIDINE HYDROCHLORIDE) [Suspect]
     Dosage: 3 UNK, 1X/DAY, ORAL
     Route: 048
  4. VIOXX [Suspect]
     Dosage: 25 MG, 1X/DAY, ORAL
     Route: 048
     Dates: start: 20040212, end: 20040226
  5. TANAKAN (GINKGO BILOBA EXTRACT) [Suspect]
     Indication: CEREBROVASCULAR DISORDER
     Dosage: 120 MG, 1X/DAY, ORAL
     Route: 048
  6. PRAVASTATIN SODIUM [Suspect]
     Indication: HYPERCHOLESTEROLAEMIA
     Dosage: 20 MG, 1X/DAY, ORAL
     Route: 048

REACTIONS (6)
  - ABDOMINAL PAIN [None]
  - BODY TEMPERATURE INCREASED [None]
  - DIARRHOEA [None]
  - HAEMODYNAMIC INSTABILITY [None]
  - RENAL FAILURE [None]
  - VOMITING [None]
